FAERS Safety Report 15759442 (Version 2)
Quarter: 2022Q3

REPORT INFORMATION
  Report Type: Report from Study
  Country: MX (occurrence: None)
  Receive Date: 20181226
  Receipt Date: 20220727
  Transmission Date: 20221026
  Serious: Yes (Hospitalization, Other)
  Sender: FDA-Public Use
  Company Number: 2018SF68895

PATIENT
  Age: 23103 Day
  Sex: Female
  Weight: 80 kg

DRUGS (2)
  1. TAGRISSO [Suspect]
     Active Substance: OSIMERTINIB
     Indication: Lung neoplasm malignant
     Route: 048
     Dates: start: 20181015, end: 20181115
  2. TAGRISSO [Suspect]
     Active Substance: OSIMERTINIB
     Indication: Lung neoplasm malignant
     Route: 048

REACTIONS (7)
  - Gastrointestinal disorder [Unknown]
  - Lupus-like syndrome [Unknown]
  - Metastases to bone [Unknown]
  - Metastases to spine [Unknown]
  - Vomiting [Unknown]
  - Nausea [Unknown]
  - Drug interaction [Unknown]
